FAERS Safety Report 7989320-1 (Version None)
Quarter: 2011Q4

REPORT INFORMATION
  Report Type: 
  Country: None (occurrence: None)
  Receive Date: 20111219
  Receipt Date: 20111206
  Transmission Date: 20120403
  Serious: Yes (Other)
  Sender: FDA-Public Use
  Company Number: FR-JNJFOC-20111207161

PATIENT

DRUGS (41)
  1. DOXORUBICIN HCL [Suspect]
     Route: 042
  2. RITUXIMAB [Suspect]
     Indication: DIFFUSE LARGE B-CELL LYMPHOMA
     Route: 065
  3. RITUXIMAB [Suspect]
     Route: 065
  4. RITUXIMAB [Suspect]
     Route: 065
  5. RITUXIMAB [Suspect]
     Route: 065
  6. CYCLOPHOSPHAMIDE [Suspect]
     Route: 065
  7. RITUXIMAB [Suspect]
     Route: 065
  8. VINCRISTINE [Suspect]
     Route: 065
  9. VINCRISTINE [Suspect]
     Route: 065
  10. DOXORUBICIN HCL [Suspect]
     Route: 042
  11. DOXORUBICIN HCL [Suspect]
     Route: 042
  12. DOXORUBICIN HCL [Suspect]
     Route: 042
  13. CYCLOPHOSPHAMIDE [Suspect]
     Route: 065
  14. METHOTREXATE [Suspect]
     Route: 037
  15. CYCLOPHOSPHAMIDE [Suspect]
     Indication: DIFFUSE LARGE B-CELL LYMPHOMA
     Route: 065
  16. CYCLOPHOSPHAMIDE [Suspect]
     Route: 065
  17. PREDNISONE [Suspect]
     Route: 065
  18. PREDNISONE [Suspect]
     Route: 065
  19. METHOTREXATE [Suspect]
     Indication: PROPHYLAXIS
     Route: 037
  20. DOXORUBICIN HCL [Suspect]
     Route: 042
  21. RITUXIMAB [Suspect]
     Route: 065
  22. RITUXIMAB [Suspect]
     Route: 065
  23. CYCLOPHOSPHAMIDE [Suspect]
     Route: 065
  24. CYCLOPHOSPHAMIDE [Suspect]
     Route: 065
  25. PREDNISONE [Suspect]
     Route: 065
  26. PREDNISONE [Suspect]
     Route: 065
  27. METHOTREXATE [Suspect]
     Route: 037
  28. VINCRISTINE [Suspect]
     Indication: DIFFUSE LARGE B-CELL LYMPHOMA
     Route: 065
  29. VINCRISTINE [Suspect]
     Route: 065
  30. DOXORUBICIN HCL [Suspect]
     Route: 042
  31. DOXORUBICIN HCL [Suspect]
     Indication: DIFFUSE LARGE B-CELL LYMPHOMA
     Route: 042
  32. RITUXIMAB [Suspect]
     Route: 065
  33. CYCLOPHOSPHAMIDE [Suspect]
     Route: 065
  34. VINCRISTINE [Suspect]
     Route: 065
  35. VINCRISTINE [Suspect]
     Route: 065
  36. VINCRISTINE [Suspect]
     Route: 065
  37. DOXORUBICIN HCL [Suspect]
     Route: 042
  38. CYCLOPHOSPHAMIDE [Suspect]
     Route: 065
  39. PREDNISONE [Suspect]
     Indication: DIFFUSE LARGE B-CELL LYMPHOMA
     Route: 065
  40. METHOTREXATE [Suspect]
     Route: 037
  41. VINCRISTINE [Suspect]
     Route: 065

REACTIONS (1)
  - BILE DUCT CANCER [None]
